FAERS Safety Report 7497807-3 (Version None)
Quarter: 2011Q2

REPORT INFORMATION
  Report Type: 
  Country: None (occurrence: None)
  Receive Date: 20110524
  Receipt Date: 20110414
  Transmission Date: 20111010
  Serious: Yes (Hospitalization, Other)
  Sender: FDA-Public Use
  Company Number: US-BAYER-201022272NA

PATIENT
  Age: 40 Year
  Sex: Female

DRUGS (9)
  1. PRILOSEC [Concomitant]
  2. PERCOCET [Concomitant]
  3. LUNESTA [Concomitant]
  4. CELEBREX [Concomitant]
     Dosage: 400 MG, QD
     Route: 048
  5. YAZ [Suspect]
     Indication: PRODUCT USED FOR UNKNOWN INDICATION
     Route: 048
     Dates: start: 20050601, end: 20090915
  6. LOTREL [Concomitant]
     Route: 048
  7. YASMIN [Suspect]
     Indication: PRODUCT USED FOR UNKNOWN INDICATION
     Route: 048
     Dates: start: 20050601, end: 20090915
  8. ALLOPURINOL [Concomitant]
     Dosage: 100 MG, QD
     Route: 048
  9. ORENCIA [Concomitant]

REACTIONS (2)
  - THROMBOSIS [None]
  - DEEP VEIN THROMBOSIS [None]
